FAERS Safety Report 25196535 (Version 1)
Quarter: 2025Q2

REPORT INFORMATION
  Report Type: Spontaneous
  Country: US (occurrence: US)
  Receive Date: 20250415
  Receipt Date: 20250415
  Transmission Date: 20250716
  Serious: Yes (Hospitalization)
  Sender: CHIESI
  Company Number: US-CHIESI-2025CHF02396

PATIENT
  Age: 20 Year
  Sex: Female

DRUGS (1)
  1. MYALEPT [Suspect]
     Active Substance: METRELEPTIN
     Indication: Product used for unknown indication
     Route: 065

REACTIONS (3)
  - Ill-defined disorder [Unknown]
  - Drug specific antibody present [Recovered/Resolved]
  - Hepatic steatosis [Unknown]
